FAERS Safety Report 13300755 (Version 1)
Quarter: 2017Q1

REPORT INFORMATION
  Report Type: Spontaneous
  Country: US (occurrence: US)
  Receive Date: 20170306
  Receipt Date: 20170306
  Transmission Date: 20170428
  Serious: Yes (Other)
  Sender: FDA-Public Use
  Company Number: None

PATIENT
  Age: 37 Year
  Sex: Female
  Weight: 80 kg

DRUGS (2)
  1. VITAMIN D [Suspect]
     Active Substance: CHOLECALCIFEROL
  2. PREGNICARE MULTIVITAMINS [Concomitant]

REACTIONS (4)
  - Premature labour [None]
  - Placental disorder [None]
  - Amniocentesis abnormal [None]
  - Induced labour [None]

NARRATIVE: CASE EVENT DATE: 20170301
